FAERS Safety Report 14739145 (Version 1)
Quarter: 2018Q2

REPORT INFORMATION
  Report Type: Spontaneous
  Country: US (occurrence: US)
  Receive Date: 20180410
  Receipt Date: 20180410
  Transmission Date: 20180711
  Serious: No
  Sender: FDA-Public Use
  Company Number: US-009507513-1803USA007814

PATIENT
  Age: 18 Year
  Sex: Female
  Weight: 67.57 kg

DRUGS (1)
  1. NEXPLANON [Suspect]
     Active Substance: ETONOGESTREL
     Indication: CONTRACEPTION
     Dosage: 1RIGHT ARM-IMPLANT, EVERY 3 YEARS
     Route: 059
     Dates: start: 20160125

REACTIONS (4)
  - Implant site irritation [Unknown]
  - Implant site reaction [Unknown]
  - Implant site pain [Unknown]
  - Implant site discolouration [Unknown]

NARRATIVE: CASE EVENT DATE: 20180116
